FAERS Safety Report 9140784 (Version 1)
Quarter: 2013Q1

REPORT INFORMATION
  Report Type: Spontaneous
  Country: US (occurrence: US)
  Receive Date: 20130305
  Receipt Date: 20130305
  Transmission Date: 20140127
  Serious: Yes (Death)
  Sender: FDA-Public Use
  Company Number: US-ENDO PHARMACEUTICALS INC.-OPIR20100049

PATIENT
  Age: 21 Year
  Sex: Male
  Weight: 64.92 kg

DRUGS (3)
  1. OPANA [Suspect]
     Indication: DRUG ABUSE
     Dosage: UNK
  2. MEPHEDRONE [Suspect]
     Indication: DRUG ABUSE
     Dosage: UNK
  3. ALPRAZOLAM [Suspect]
     Indication: DRUG ABUSE
     Dosage: UNK

REACTIONS (2)
  - Toxicity to various agents [None]
  - Drug abuse [None]
